FAERS Safety Report 4385670-9 (Version None)
Quarter: 2004Q2

REPORT INFORMATION
  Report Type: 
  Country: None (occurrence: None)
  Receive Date: 20040625
  Receipt Date: 20040625
  Transmission Date: 20050107
  Serious: Yes (Hospitalization)
  Sender: FDA-Public Use
  Company Number: None

PATIENT
  Sex: Female

DRUGS (8)
  1. TAXOL [Suspect]
     Indication: CARCINOMA
     Dosage: 53.6MG IV WEEKLY
     Route: 042
     Dates: start: 20040310
  2. CARBOPLATIN [Suspect]
     Indication: CARCINOMA
     Dosage: 75MG IV WEEKLY
     Route: 042
     Dates: start: 20040310
  3. IFOSFAMIDE [Concomitant]
  4. MESNA [Concomitant]
  5. OXYCODONE [Concomitant]
  6. DECADRON [Concomitant]
  7. COMPAZINE [Concomitant]
  8. LOTRIMIN [Concomitant]

REACTIONS (5)
  - CELLULITIS [None]
  - CHEST DISCOMFORT [None]
  - CHILLS [None]
  - MYOCARDIAL INFARCTION [None]
  - SEPSIS [None]
